FAERS Safety Report 15692586 (Version 2)
Quarter: 2019Q4

REPORT INFORMATION
  Report Type: Spontaneous
  Country: US (occurrence: US)
  Receive Date: 20181206
  Receipt Date: 20191202
  Transmission Date: 20200122
  Serious: Yes (Other)
  Sender: FDA-Public Use
  Company Number: US-PURDUE-USA-2018-0144293

PATIENT
  Sex: Female

DRUGS (4)
  1. OXYCONTIN [Suspect]
     Active Substance: OXYCODONE HYDROCHLORIDE
     Indication: PRODUCT USED FOR UNKNOWN INDICATION
     Dosage: UNK
     Route: 048
  2. HYDROCODONE BITARTRATE (SIMILAR TO NDA 206627) [Suspect]
     Active Substance: HYDROCODONE BITARTRATE
     Indication: OROPHARYNGEAL PAIN
  3. CODEINE [Suspect]
     Active Substance: CODEINE
     Indication: PRODUCT USED FOR UNKNOWN INDICATION
     Dosage: UNK
     Route: 065
     Dates: start: 2012
  4. HYDROCODONE BITARTRATE (SIMILAR TO NDA 206627) [Suspect]
     Active Substance: HYDROCODONE BITARTRATE
     Indication: BRONCHITIS
     Dosage: UNK
     Route: 048
     Dates: start: 2012

REACTIONS (11)
  - Depression [Unknown]
  - Vomiting [Unknown]
  - Anxiety [Unknown]
  - Nausea [Unknown]
  - Drug withdrawal syndrome [Unknown]
  - Pain [Unknown]
  - Restless legs syndrome [Unknown]
  - Malaise [Unknown]
  - Drug dependence [Unknown]
  - Diarrhoea [Unknown]
  - Drug abuse [Unknown]

NARRATIVE: CASE EVENT DATE: 2012
